FAERS Safety Report 8174498-X (Version None)
Quarter: 2012Q1

REPORT INFORMATION
  Report Type: 
  Country: None (occurrence: None)
  Receive Date: 20120229
  Receipt Date: 20120222
  Transmission Date: 20120608
  Serious: Yes (Other)
  Sender: FDA-Public Use
  Company Number: JP-ABBOTT-12P-087-0904213-00

PATIENT
  Sex: Male
  Weight: 48 kg

DRUGS (7)
  1. PRECEDEX [Suspect]
     Indication: SEDATION
     Dosage: 0.3-0.4 MICROG/KG/HR X 1, DRIP INFUSION
     Dates: start: 20120116, end: 20120117
  2. DOBUTAMINE HCL [Concomitant]
     Indication: BLOOD PRESSURE MANAGEMENT
     Dosage: 3-5 MICROG/KG/MIN X 1
     Dates: start: 20120116
  3. SEVOFLURANE [Suspect]
     Indication: GENERAL ANAESTHESIA
     Dosage: 1-3% X 1
     Route: 055
     Dates: start: 20120116, end: 20120116
  4. DIAZEPAM [Concomitant]
     Indication: INDUCTION OF ANAESTHESIA
     Dates: start: 20120116
  5. FENTANYL [Concomitant]
     Indication: POSTOPERATIVE ANALGESIA
     Dosage: 20-60 MICROG/HR X 1
     Dates: start: 20120116
  6. DOPAMINE HCL [Concomitant]
     Indication: BLOOD PRESSURE MANAGEMENT
     Dosage: 3-5 MICROG/KG/MIN X 1
     Dates: start: 20120116
  7. ROCURONIUM BROMIDE [Concomitant]
     Indication: INDUCTION OF ANAESTHESIA
     Dates: start: 20120116

REACTIONS (5)
  - PERIPHERAL CIRCULATORY FAILURE [None]
  - HYPERTHERMIA [None]
  - BLOOD CREATINE PHOSPHOKINASE INCREASED [None]
  - MUSCULOSKELETAL STIFFNESS [None]
  - ACIDOSIS [None]
